FAERS Safety Report 16835988 (Version 8)
Quarter: 2020Q3

REPORT INFORMATION
  Report Type: Report from Study
  Country: BR (occurrence: BR)
  Receive Date: 20190921
  Receipt Date: 20200718
  Transmission Date: 20201102
  Serious: Yes (Hospitalization, Other)
  Sender: FDA-Public Use
  Company Number: PHHY2019BR218902

PATIENT
  Age: 57 Year
  Sex: Male
  Weight: 93 kg

DRUGS (15)
  1. METFORMIN SANDOZ 500 MG TABLETTER, FILMDRASJERTE [Suspect]
     Active Substance: METFORMIN HYDROCHLORIDE
     Indication: DIABETES MELLITUS
     Dosage: 2 DF (2 TABLETS OF 500 MG), QD
     Route: 048
     Dates: start: 201901
  2. ATORVASTATIN [Suspect]
     Active Substance: ATORVASTATIN
     Indication: BLOOD CHOLESTEROL INCREASED
     Dosage: 40 MG, QD
     Route: 048
     Dates: start: 201810
  3. ENTRESTO [Suspect]
     Active Substance: SACUBITRIL\VALSARTAN
     Dosage: (97 MG SACUBITRIL/103 MG VALSARTAN), HALF TABLET IN MORNING AND 1 AT NIGHT, STARTED ABOUT 2 MONTH AG
     Route: 065
     Dates: start: 202005
  4. AAS [Concomitant]
     Active Substance: ASPIRIN
     Indication: ANTICOAGULANT THERAPY
     Dosage: 100 MG, QD (MANY YEARS AGO)
     Route: 065
  5. OMEPRAZOLE. [Suspect]
     Active Substance: OMEPRAZOLE
     Dosage: UNK, (IN THE MORNING)
     Route: 065
  6. CONCARDIO [Concomitant]
     Active Substance: BISOPROLOL FUMARATE
     Indication: CARDIAC FAILURE
     Dosage: 1.5 DF (1 AND HALF TABLET OF 5 MG), QD
     Route: 048
     Dates: start: 20191005
  7. ENTRESTO [Suspect]
     Active Substance: SACUBITRIL\VALSARTAN
     Indication: CARDIAC FAILURE
     Dosage: 100 MG (49 MG SACUBITRIL/51 MG VALSARTAN), Q12H
     Route: 048
     Dates: start: 201902, end: 201909
  8. ENTRESTO [Suspect]
     Active Substance: SACUBITRIL\VALSARTAN
     Indication: CARDIAC FAILURE
     Dosage: 200 MG(97 MG SACUBITRIL/103 MG VALSARTAN), Q12H
     Route: 048
     Dates: start: 201810, end: 201902
  9. ENTRESTO [Suspect]
     Active Substance: SACUBITRIL\VALSARTAN
     Dosage: 200 MG  (97 MG SACUBITRIL/103 MG VALSARTAN)
     Route: 065
     Dates: start: 20190817
  10. ENTRESTO [Suspect]
     Active Substance: SACUBITRIL\VALSARTAN
     Dosage: 200 MG  (97 MG SACUBITRIL/103 MG VALSARTAN), Q12H
     Route: 048
     Dates: start: 201909
  11. CLOPIDOGREL HYDROGENSULPHATE FILM?COATED TABLET [Suspect]
     Active Substance: CLOPIDOGREL BISULFATE
     Indication: ANTICOAGULANT THERAPY
     Dosage: 75 MG, QD (MANY YEARS AGO)
     Route: 048
  12. SPIRONOLACTONE. [Concomitant]
     Active Substance: SPIRONOLACTONE
     Indication: HYPERTENSION
     Dosage: 25 MG, QD
     Route: 048
     Dates: start: 201810
  13. ENTRESTO [Suspect]
     Active Substance: SACUBITRIL\VALSARTAN
     Dosage: 200 MG  (97 MG SACUBITRIL/103 MG VALSARTAN)
     Route: 065
  14. OMEPRAZOLE. [Suspect]
     Active Substance: OMEPRAZOLE
     Indication: ABDOMINAL DISCOMFORT
     Dosage: 20 MG, QD
     Route: 048
     Dates: start: 2018
  15. VASTAREL [Concomitant]
     Active Substance: TRIMETAZIDINE DIHYDROCHLORIDE
     Indication: CARDIAC FAILURE
     Dosage: 2 DF (35 MG), QD
     Route: 048
     Dates: start: 201810

REACTIONS (26)
  - Eye colour change [Not Recovered/Not Resolved]
  - Venous occlusion [Unknown]
  - Diabetes mellitus [Unknown]
  - Syncope [Unknown]
  - Peripheral swelling [Recovering/Resolving]
  - Paraesthesia [Not Recovered/Not Resolved]
  - Burning sensation [Not Recovered/Not Resolved]
  - Wrong technique in product usage process [Not Recovered/Not Resolved]
  - Dyspnoea [Not Recovered/Not Resolved]
  - Loss of consciousness [Recovering/Resolving]
  - Presyncope [Not Recovered/Not Resolved]
  - Abdominal pain upper [Not Recovered/Not Resolved]
  - Ejection fraction decreased [Not Recovered/Not Resolved]
  - Loss of consciousness [Recovered/Resolved]
  - Pain [Not Recovered/Not Resolved]
  - Fall [Recovered/Resolved]
  - Arrhythmia [Recovered/Resolved]
  - Dizziness [Not Recovered/Not Resolved]
  - Swelling [Unknown]
  - Blood pressure increased [Recovered/Resolved]
  - Tremor [Not Recovered/Not Resolved]
  - Laziness [Not Recovered/Not Resolved]
  - Weight decreased [Not Recovered/Not Resolved]
  - Blood pressure decreased [Unknown]
  - Chest pain [Not Recovered/Not Resolved]
  - Dyspepsia [Not Recovered/Not Resolved]

NARRATIVE: CASE EVENT DATE: 201901
